FAERS Safety Report 7859414-X (Version None)
Quarter: 2011Q4

REPORT INFORMATION
  Report Type: 
  Country: None (occurrence: None)
  Receive Date: 20111017
  Receipt Date: 20111017
  Transmission Date: 20120403
  Serious: Yes (Hospitalization)
  Sender: FDA-Public Use
  Company Number: None

PATIENT
  Sex: Female
  Weight: 141.5223 kg

DRUGS (16)
  1. RANITIDINE [Concomitant]
  2. CLONAZEPAM [Concomitant]
  3. SERTRALINE HYDROCHLORIDE [Concomitant]
  4. NAPROXEN [Concomitant]
  5. ISOSORBIDE DINITRATE [Concomitant]
  6. CYCLOBENZAPRINE HCL [Concomitant]
  7. GEMFIBROZIL [Concomitant]
  8. FUROSEMIDE [Concomitant]
  9. OMEPRAZOLE [Concomitant]
  10. METFORMIN HCL [Concomitant]
  11. LANTUS [Concomitant]
  12. HUMALOG [Concomitant]
  13. CLOPIDOGREL [Suspect]
     Indication: ANTIPLATELET THERAPY
     Dosage: 75 MG, QD
     Dates: start: 20100505
  14. SIMVASTATIN [Concomitant]
  15. POTASSIUM CHLORIDE [Concomitant]
  16. TRAMADOL HYDROCHLORIDE [Concomitant]

REACTIONS (1)
  - CORONARY ARTERY OCCLUSION [None]
